FAERS Safety Report 5836038-7 (Version None)
Quarter: 2008Q3

REPORT INFORMATION
  Report Type: 
  Country: None (occurrence: None)
  Receive Date: 20080806
  Receipt Date: 20080725
  Transmission Date: 20090109
  Serious: Yes (Other)
  Sender: FDA-Public Use
  Company Number: SG-PFIZER INC-2008062984

PATIENT
  Age: 54 Year
  Sex: Male

DRUGS (2)
  1. CLINDAMYCIN PHOSPHATE [Suspect]
     Route: 042
     Dates: start: 20080422, end: 20080425
  2. CIPROFLOXACIN [Suspect]
     Route: 042
     Dates: start: 20080422, end: 20080425

REACTIONS (2)
  - MUCOSAL ULCERATION [None]
  - RASH MACULO-PAPULAR [None]
